FAERS Safety Report 16559554 (Version 1)
Quarter: 2019Q3

REPORT INFORMATION
  Report Type: Spontaneous
  Country: FR (occurrence: FR)
  Receive Date: 20190711
  Receipt Date: 20190711
  Transmission Date: 20191004
  Serious: Yes (Hospitalization)
  Sender: FDA-Public Use
  Company Number: FR-ACCORD-138041

PATIENT
  Age: 89 Year
  Sex: Male
  Weight: 63 kg

DRUGS (6)
  1. AERIUS (DESLORATADINE) [Suspect]
     Active Substance: DESLORATADINE
     Indication: URTICARIA
     Route: 048
  2. FUROSEMIDE. [Suspect]
     Active Substance: FUROSEMIDE
     Indication: HYPERTENSION
     Route: 048
  3. PREVISCAN (FLUINDIONE) [Suspect]
     Active Substance: FLUINDIONE
     Indication: CORONARY ARTERY DISEASE
     Dosage: STRENGTH: 20 MG, SCORED TABLET
     Route: 048
     Dates: end: 20180522
  4. BISOPROLOL [Concomitant]
     Active Substance: BISOPROLOL
     Indication: HYPERTENSION
     Route: 048
  5. THEOPHYLLINE [Suspect]
     Active Substance: THEOPHYLLINE ANHYDROUS
     Indication: BRONCHITIS CHRONIC
     Route: 048
  6. AMIODARONE [Suspect]
     Active Substance: AMIODARONE
     Indication: VENTRICULAR TACHYCARDIA
     Route: 048

REACTIONS (2)
  - Rectal haemorrhage [Recovered/Resolved]
  - International normalised ratio increased [Recovered/Resolved]

NARRATIVE: CASE EVENT DATE: 20180521
